FAERS Safety Report 5246403-7 (Version None)
Quarter: 2007Q1

REPORT INFORMATION
  Report Type: 
  Country: None (occurrence: None)
  Receive Date: 20070226
  Receipt Date: 20070216
  Transmission Date: 20070707
  Serious: Yes (Disabling, Other)
  Sender: FDA-Public Use
  Company Number: US-JNJFOC-20070205015

PATIENT
  Sex: Female
  Weight: 81.65 kg

DRUGS (8)
  1. DURAGESIC [Suspect]
     Indication: PAIN
     Route: 062
  2. HYDROCODONE [Concomitant]
     Indication: PAIN
     Route: 048
  3. PREMARIN [Concomitant]
     Route: 048
  4. MUPIROCIN [Concomitant]
     Indication: SKIN DISORDER
     Route: 061
  5. EFFEXOR [Concomitant]
     Indication: ANTIDEPRESSANT THERAPY
     Route: 048
  6. WELLBUTRIN [Concomitant]
     Indication: ANTIDEPRESSANT THERAPY
     Route: 048
  7. VALIUM [Concomitant]
     Indication: SLEEP DISORDER THERAPY
     Route: 048
  8. ADDERALL 10 [Concomitant]
     Indication: DISTURBANCE IN ATTENTION
     Route: 048

REACTIONS (4)
  - ANORGASMIA [None]
  - INCONTINENCE [None]
  - LIBIDO DECREASED [None]
  - SQUAMOUS CELL CARCINOMA [None]
